FAERS Safety Report 5153193-5 (Version None)
Quarter: 2006Q4

REPORT INFORMATION
  Report Type: 
  Country: None (occurrence: None)
  Receive Date: 20061117
  Receipt Date: 20010522
  Transmission Date: 20070319
  Serious: Yes (Hospitalization)
  Sender: FDA-Public Use
  Company Number: CA-ROCHE-260907

PATIENT
  Age: 34 Year
  Sex: Male
  Weight: 93 kg

DRUGS (2)
  1. DACLIZUMAB [Suspect]
     Indication: PSORIASIS
     Dosage: DRUG TAKEN ON DAYS 0, 14, 28, 42 AND 56.
     Route: 042
     Dates: start: 20010130, end: 20010130
  2. NAPROSYN [Concomitant]
     Dates: start: 20010326, end: 20010326

REACTIONS (9)
  - CHILLS [None]
  - DERMATITIS EXFOLIATIVE [None]
  - EOSINOPHIL COUNT INCREASED [None]
  - ERYTHEMA MULTIFORME [None]
  - MALAISE [None]
  - PSORIASIS [None]
  - PYREXIA [None]
  - URTICARIA [None]
  - WHITE BLOOD CELL COUNT INCREASED [None]
